FAERS Safety Report 19658922 (Version 2)
Quarter: 2021Q3

REPORT INFORMATION
  Report Type: Spontaneous
  Country: US (occurrence: US)
  Receive Date: 20210805
  Receipt Date: 20210818
  Transmission Date: 20211014
  Serious: No
  Sender: FDA-Public Use
  Company Number: US-TEVA-2021-US-1938466

PATIENT
  Age: 77 Year
  Sex: Female

DRUGS (1)
  1. ALBUTEROL SULFATE HFA [Suspect]
     Active Substance: ALBUTEROL SULFATE
     Dosage: INHALATION ? AEROSOL
     Route: 055

REACTIONS (4)
  - Device malfunction [Unknown]
  - Product dispensing error [Unknown]
  - Dysgeusia [Unknown]
  - Product taste abnormal [Unknown]
